FAERS Safety Report 10229888 (Version 1)
Quarter: 2014Q2

REPORT INFORMATION
  Report Type: Spontaneous
  Country: US (occurrence: US)
  Receive Date: 20140611
  Receipt Date: 20140611
  Transmission Date: 20141212
  Serious: No
  Sender: FDA-Public Use
  Company Number: US-BAYER-2014-086135

PATIENT
  Age: 18 Year
  Sex: Female

DRUGS (2)
  1. LEVONORGESTREL [Suspect]
     Dosage: UNK UNK, CONT
     Route: 015
  2. LEVONORGESTREL [Suspect]
     Dosage: UNK UNK, CONT
     Route: 015

REACTIONS (2)
  - Device expulsion [None]
  - Off label use [None]
